FAERS Safety Report 22054752 (Version 2)
Quarter: 2023Q1

REPORT INFORMATION
  Report Type: Spontaneous
  Country: US (occurrence: US)
  Receive Date: 20230302
  Receipt Date: 20230317
  Transmission Date: 20230418
  Serious: Yes (Hospitalization)
  Sender: FDA-Public Use
  Company Number: US-TEVA-2023-US-2859673

PATIENT
  Age: 70 Year
  Sex: Male

DRUGS (2)
  1. CISPLATIN [Suspect]
     Active Substance: CISPLATIN
     Indication: Squamous cell carcinoma of lung
     Dosage: 43MG EVERY THREE WEEKS WITH A CUMULATIVE DOSE OF 172MG
     Route: 065
  2. GEMCITABINE [Suspect]
     Active Substance: GEMCITABINE
     Indication: Squamous cell carcinoma of lung
     Dosage: 1688MG WEEKLY WITH A CUMULATIVE DOSE OF 13504MG
     Route: 065

REACTIONS (2)
  - Arteriospasm coronary [Recovering/Resolving]
  - Acute myocardial infarction [Recovering/Resolving]
